FAERS Safety Report 8968773 (Version 1)
Quarter: 2012Q4

REPORT INFORMATION
  Report Type: 
  Country: US (occurrence: US)
  Receive Date: 20121218
  Receipt Date: 20121218
  Transmission Date: 20130627
  Serious: No
  Sender: FDA-Public Use
  Company Number: US-BRISTOL-MYERS SQUIBB COMPANY-16736662

PATIENT
  Age: 65 Year
  Sex: Female
  Weight: 90.7 kg

DRUGS (5)
  1. ABILIFY TABS [Suspect]
     Indication: DEPRESSION
     Dates: start: 20120622
  2. LAMICTAL [Suspect]
     Dosage: 1DF: 1 tab
  3. SINEMET [Concomitant]
  4. IRBESARTAN [Concomitant]
  5. AZILECT [Concomitant]

REACTIONS (3)
  - Vomiting [Recovered/Resolved]
  - Nausea [Recovered/Resolved]
  - Dizziness [Recovered/Resolved]
